FAERS Safety Report 5961076-3 (Version None)
Quarter: 2008Q4

REPORT INFORMATION
  Report Type: 
  Country: None (occurrence: None)
  Receive Date: 20081121
  Receipt Date: 20081110
  Transmission Date: 20090506
  Serious: Yes (Death, Hospitalization)
  Sender: FDA-Public Use
  Company Number: KR-WYE-H06811208

PATIENT
  Age: 53 Year
  Sex: Female

DRUGS (2)
  1. RAPAMUNE [Suspect]
     Indication: PROPHYLAXIS AGAINST TRANSPLANT REJECTION
     Route: 048
     Dates: start: 20080514, end: 20081107
  2. CELLCEPT [Concomitant]
     Indication: PROPHYLAXIS AGAINST TRANSPLANT REJECTION
     Dosage: 250 MG

REACTIONS (7)
  - GASTROINTESTINAL NECROSIS [None]
  - HEPATIC FAILURE [None]
  - INTESTINAL OBSTRUCTION [None]
  - MULTI-ORGAN DISORDER [None]
  - PANCREATITIS [None]
  - SEPSIS [None]
  - SEPTIC SHOCK [None]
